FAERS Safety Report 8802045 (Version 1)
Quarter: 2012Q4

REPORT INFORMATION
  Report Type: 
  Country: US (occurrence: US)
  Receive Date: 20120921
  Receipt Date: 20120921
  Transmission Date: 20130627
  Serious: No
  Sender: FDA-Public Use
  Company Number: US-BAYER-2012-096586

PATIENT
  Sex: Female

DRUGS (2)
  1. GADAVIST [Suspect]
     Dosage: UNK
     Dates: start: 201209
  2. BENADRYL [Concomitant]
     Dosage: UNK
     Dates: start: 201209

REACTIONS (1)
  - Urticaria [None]
